FAERS Safety Report 20814277 (Version 2)
Quarter: 2022Q2

REPORT INFORMATION
  Report Type: Spontaneous
  Country: DE (occurrence: DE)
  Receive Date: 20220511
  Receipt Date: 20220523
  Transmission Date: 20220721
  Serious: Yes (Other)
  Sender: FDA-Public Use
  Company Number: DE-ORGANON-O2205DEU000802

PATIENT
  Sex: Male

DRUGS (1)
  1. EBASTINE [Suspect]
     Active Substance: EBASTINE
     Dosage: 5 MILLIGRAM, FORMULATION REPORTED AS FILM-COATED TABLET
     Route: 048

REACTIONS (1)
  - Epilepsy [Unknown]
